FAERS Safety Report 5400777-2 (Version None)
Quarter: 2007Q3

REPORT INFORMATION
  Report Type: 
  Country: None (occurrence: None)
  Receive Date: 20070730
  Receipt Date: 20070720
  Transmission Date: 20080115
  Serious: Yes (Life-Threatening)
  Sender: FDA-Public Use
  Company Number: US-BAXTER-2007BH006518

PATIENT
  Age: 40 Year
  Sex: Female
  Weight: 73 kg

DRUGS (11)
  1. FENTANYL CITRATE [Suspect]
     Indication: ANAESTHESIA
     Route: 042
  2. PROPOFOL [Concomitant]
     Indication: ANAESTHESIA
     Route: 042
  3. LIDOCAINE [Concomitant]
     Indication: ANAESTHESIA
     Route: 042
  4. MIDAZOLAM [Concomitant]
     Indication: ANAESTHESIA
     Route: 042
  5. ROCURONIUM BROMIDE [Concomitant]
     Indication: ANAESTHESIA
     Route: 042
  6. SEVOFLURANE [Concomitant]
     Indication: ANAESTHESIA
     Route: 065
  7. DEXAMETHASONE [Concomitant]
     Indication: NAUSEA
     Route: 042
  8. METOCLOPRAMIDE [Concomitant]
     Indication: NAUSEA
     Route: 042
  9. ONDANSETRON [Concomitant]
     Indication: NAUSEA
     Route: 042
  10. ESMOLOL HCL [Concomitant]
     Indication: ANAESTHESIA
     Route: 042
  11. ESCITALOPRAM OXALATE [Concomitant]
     Indication: ANXIETY
     Dosage: DOSE UNIT:UNKNOWN
     Route: 065

REACTIONS (2)
  - ANAPHYLACTIC REACTION [None]
  - PULMONARY OEDEMA [None]
